FAERS Safety Report 8388951-7 (Version None)
Quarter: 2012Q2

REPORT INFORMATION
  Report Type: 
  Country: None (occurrence: None)
  Receive Date: 20120528
  Receipt Date: 20120524
  Transmission Date: 20120825
  Serious: Yes (Other)
  Sender: FDA-Public Use
  Company Number: DE-AMGEN-DEUSP2012032467

PATIENT
  Age: 71 Year

DRUGS (1)
  1. VECTIBIX [Suspect]
     Indication: COLON CANCER

REACTIONS (2)
  - PETECHIAE [None]
  - VASCULITIS [None]
